FAERS Safety Report 11055959 (Version 1)
Quarter: 2015Q2

REPORT INFORMATION
  Report Type: Spontaneous
  Country: US (occurrence: US)
  Receive Date: 20150422
  Receipt Date: 20150422
  Transmission Date: 20150821
  Serious: No
  Sender: FDA-Public Use
  Company Number: US-TEVA-549771USA

PATIENT
  Sex: Male

DRUGS (10)
  1. FUROSEMIDE. [Concomitant]
     Active Substance: FUROSEMIDE
  2. CALCITRIOL. [Concomitant]
     Active Substance: CALCITRIOL
  3. ANAGRELIDE [Suspect]
     Active Substance: ANAGRELIDE
     Indication: PLATELET COUNT INCREASED
     Dosage: (9 PILLS ADAY)5 PILLS AT NIGHT AND 4 IN AM
     Route: 065
  4. CARVEDILOL. [Concomitant]
     Active Substance: CARVEDILOL
  5. TUMS [Concomitant]
     Active Substance: CALCIUM CARBONATE
  6. ARANESP [Concomitant]
     Active Substance: DARBEPOETIN ALFA
  7. AMLODIPINE [Concomitant]
     Active Substance: AMLODIPINE BESYLATE
  8. ALLOPURINOL. [Concomitant]
     Active Substance: ALLOPURINOL
  9. FE [Concomitant]
     Active Substance: IRON
  10. VITAMIN D [Concomitant]
     Active Substance: CHOLECALCIFEROL

REACTIONS (1)
  - Pruritus [Unknown]
